FAERS Safety Report 8777359 (Version 1)
Quarter: 2012Q4

REPORT INFORMATION
  Report Type: 
  Country: DE (occurrence: DE)
  Receive Date: 20120911
  Receipt Date: 20120911
  Transmission Date: 20130627
  Serious: Yes (Death)
  Sender: FDA-Public Use
  Company Number: DE-PFIZER INC-2012220853

PATIENT
  Sex: Male

DRUGS (1)
  1. SUTENT [Suspect]
     Indication: METASTATIC RENAL CELL CARCINOMA
     Dosage: 50 (unknown unit and frequency)
     Dates: end: 201207

REACTIONS (1)
  - Death [Fatal]
